FAERS Safety Report 5593498-7 (Version None)
Quarter: 2007Q4

REPORT INFORMATION
  Report Type: 
  Country: None (occurrence: None)
  Receive Date: 20071218
  Receipt Date: 20070521
  Transmission Date: 20080405
  Serious: Yes (Hospitalization, Other)
  Sender: FDA-Public Use
  Company Number: 2005120756

PATIENT
  Age: 55 Year
  Sex: Male
  Weight: 106.6 kg

DRUGS (4)
  1. BEXTRA [Suspect]
     Indication: ARTHRALGIA
     Dosage: 40 MG (20 MG,2 IN 1 D)
     Dates: start: 20020820
  2. BEXTRA [Suspect]
     Indication: ARTHRITIS
     Dosage: 40 MG (20 MG,2 IN 1 D)
     Dates: start: 20020820
  3. BEXTRA [Suspect]
     Indication: BACK PAIN
     Dosage: 40 MG (20 MG,2 IN 1 D)
     Dates: start: 20020820
  4. BEXTRA [Suspect]
     Indication: NECK PAIN
     Dosage: 40 MG (20 MG,2 IN 1 D)
     Dates: start: 20020820

REACTIONS (1)
  - CORONARY ARTERY OCCLUSION [None]
